FAERS Safety Report 12184111 (Version 2)
Quarter: 2016Q2

REPORT INFORMATION
  Report Type: Spontaneous
  Country: US (occurrence: US)
  Receive Date: 20160316
  Receipt Date: 20160418
  Transmission Date: 20160815
  Serious: Yes (Hospitalization)
  Sender: FDA-Public Use
  Company Number: US-SA-2016SA012543

PATIENT
  Age: 77 Year
  Sex: Male

DRUGS (1)
  1. BCG FOR IMMUNOTHERAPY [Suspect]
     Active Substance: BACILLUS CALMETTE-GUERIN ANTIGEN, UNSPECIFIED SUBSTRAIN
     Indication: BLADDER CANCER
     Route: 043

REACTIONS (5)
  - Pyrexia [Recovering/Resolving]
  - Night sweats [Recovering/Resolving]
  - Granulomatous liver disease [Recovering/Resolving]
  - Disseminated Bacillus Calmette-Guerin infection [Unknown]
  - Weight decreased [Recovering/Resolving]
